FAERS Safety Report 7222946-1 (Version None)
Quarter: 2011Q1

REPORT INFORMATION
  Report Type: 
  Country: None (occurrence: None)
  Receive Date: 20110106
  Receipt Date: 20110106
  Transmission Date: 20110831
  Serious: Yes (Hospitalization)
  Sender: FDA-Public Use
  Company Number: None

PATIENT
  Age: 84 Year
  Sex: Female
  Weight: 70.5 kg

DRUGS (28)
  1. LOPERAMIDE [Concomitant]
  2. SPIRONOLACTONE [Concomitant]
  3. OXYCODONE [Concomitant]
  4. ROBITUSSIN [Concomitant]
  5. HUMULIN R [Concomitant]
  6. HYDROCHLOROTHIAZIDE [Concomitant]
  7. LIDODERM [Concomitant]
  8. COUMADIN [Suspect]
     Indication: CORONARY ARTERY DISEASE
     Dosage: 4.5 MG EOD PO
     Route: 048
  9. FLAGYL [Concomitant]
  10. PROMETHAZINE [Concomitant]
  11. LASIX [Concomitant]
  12. METOPROLOL [Concomitant]
  13. ASA [Concomitant]
  14. NITROGLYCERIN [Concomitant]
  15. OMEPRAZOLE [Concomitant]
  16. DITROPAN [Concomitant]
  17. CRESTOR [Concomitant]
  18. POTASSIUM CHLORIDE [Concomitant]
  19. COUMADIN [Suspect]
     Indication: CORONARY ARTERY DISEASE
     Dosage: 5MG EOD PO
     Route: 048
  20. HUMULIN R [Concomitant]
  21. HUMULIN R [Concomitant]
  22. DOCUSATE SODIUM [Concomitant]
  23. VICODIN [Concomitant]
  24. SERTRALINE HYDROCHLORIDE [Concomitant]
  25. DOXYCYCLINE [Concomitant]
  26. LOTREL [Concomitant]
  27. NITROFURANTOIN [Concomitant]
  28. METOPROLOL [Concomitant]

REACTIONS (5)
  - NAUSEA [None]
  - VOMITING [None]
  - CLOSTRIDIAL INFECTION [None]
  - INTERNATIONAL NORMALISED RATIO INCREASED [None]
  - ABDOMINAL PAIN [None]
